FAERS Safety Report 7822242-5 (Version None)
Quarter: 2011Q4

REPORT INFORMATION
  Report Type: 
  Country: None (occurrence: None)
  Receive Date: 20111018
  Receipt Date: 20111003
  Transmission Date: 20120403
  Serious: Yes (Other)
  Sender: FDA-Public Use
  Company Number: ES-WATSON-2011-16417

PATIENT
  Age: 25 Year
  Sex: Female

DRUGS (4)
  1. METOCLOPRAMIDE [Suspect]
     Indication: PRODUCT USED FOR UNKNOWN INDICATION
  2. ALCOHOL [Suspect]
     Indication: PRODUCT USED FOR UNKNOWN INDICATION
     Dosage: 24 G, DAILY
     Route: 048
  3. BISACODYL [Suspect]
     Indication: PRODUCT USED FOR UNKNOWN INDICATION
  4. ACETAMINOPHEN [Suspect]
     Indication: HEADACHE
     Dosage: 3250 MG, DAILY
     Route: 048

REACTIONS (4)
  - LIVER INJURY [None]
  - HYPERSENSITIVITY [None]
  - HEPATOCELLULAR INJURY [None]
  - EOSINOPHILIA [None]
